FAERS Safety Report 5071189-9 (Version None)
Quarter: 2006Q3

REPORT INFORMATION
  Report Type: 
  Country: None (occurrence: None)
  Receive Date: 20060728
  Receipt Date: 20060728
  Transmission Date: 20061208
  Serious: No
  Sender: FDA-Public Use
  Company Number: None

PATIENT
  Age: 48 Year
  Sex: Male

DRUGS (1)
  1. OLD SPICE RED ZONE SOLID-STICK ANTIPERSPIRANT [Suspect]
     Dosage: DAILY  TOPICALLY
     Route: 061
     Dates: start: 20060501, end: 20060626

REACTIONS (4)
  - BONE PAIN [None]
  - CHEST PAIN [None]
  - MUSCULOSKELETAL PAIN [None]
  - PAIN IN EXTREMITY [None]
